FAERS Safety Report 5146684-4 (Version None)
Quarter: 2006Q4

REPORT INFORMATION
  Report Type: 
  Country: None (occurrence: None)
  Receive Date: 20061109
  Receipt Date: 20060314
  Transmission Date: 20070319
  Serious: Yes (Hospitalization)
  Sender: FDA-Public Use
  Company Number: US-AMGEN-US172226

PATIENT
  Sex: Female

DRUGS (7)
  1. PANITUMUMAB [Suspect]
     Indication: COLORECTAL CANCER
     Route: 042
     Dates: start: 20051228
  2. FLUOROURACIL [Suspect]
     Route: 042
  3. AVASTIN [Concomitant]
     Route: 042
  4. LEUCOVORIN CALCIUM [Concomitant]
     Route: 042
  5. OXALIPLATIN [Concomitant]
     Route: 042
  6. ATENOLOL [Concomitant]
     Route: 065
  7. PROZAC [Concomitant]
     Route: 065

REACTIONS (5)
  - DEHYDRATION [None]
  - DIARRHOEA [None]
  - HEPATIC CYST [None]
  - SMALL INTESTINAL OBSTRUCTION [None]
  - VOMITING [None]
